FAERS Safety Report 8795437 (Version 3)
Quarter: 2012Q4

REPORT INFORMATION
  Report Type: 
  Country: JP (occurrence: JP)
  Receive Date: 20120917
  Receipt Date: 20121227
  Transmission Date: 20130627
  Serious: Yes (Other)
  Sender: FDA-Public Use
  Company Number: JP-009507513-1206USA01495

PATIENT
  Age: 39 Year
  Sex: Female

DRUGS (12)
  1. FOSAPREPITANT DIMEGLUMINE [Suspect]
     Indication: PROPHYLAXIS OF NAUSEA AND VOMITING
     Dosage: 150 mg, qd
     Route: 041
     Dates: start: 20120409, end: 20120409
  2. FOSAPREPITANT DIMEGLUMINE [Suspect]
     Dosage: 150 mg, qd
     Route: 041
     Dates: start: 20120507, end: 20120507
  3. ALOXI [Concomitant]
     Dosage: 0.75 mg, qd
     Route: 042
     Dates: start: 20120409, end: 20120409
  4. ALOXI [Concomitant]
     Dosage: 0.75 mg, qd
     Route: 042
     Dates: start: 20120507, end: 20120507
  5. DECADRON PHOSPHATE INJECTION [Concomitant]
     Dosage: 13.2 mg, qd
     Route: 042
     Dates: start: 20120409, end: 20120409
  6. DECADRON PHOSPHATE INJECTION [Concomitant]
     Dosage: 13.2 mg, qd
     Route: 042
     Dates: start: 20120507, end: 20120507
  7. EPIRUBICIN HYDROCHLORIDE [Concomitant]
     Indication: BREAST CANCER
     Dosage: 100 mg/m2, qd
     Route: 042
     Dates: start: 20120409, end: 20120409
  8. EPIRUBICIN HYDROCHLORIDE [Concomitant]
     Dosage: 100 mg/m2, qd
     Route: 042
     Dates: start: 20120507, end: 20120507
  9. ENDOXAN [Concomitant]
     Indication: BREAST CANCER
     Dosage: 500 mg/m2, qd
     Route: 042
     Dates: start: 20120409, end: 20120409
  10. ENDOXAN [Concomitant]
     Dosage: 500 mg/m2, qd
     Route: 042
     Dates: start: 20120507, end: 20120507
  11. FLUOROURACIL [Concomitant]
     Indication: BREAST CANCER
     Dosage: 500 mg/m2, qd
     Route: 042
     Dates: start: 20120409, end: 20120409
  12. FLUOROURACIL [Concomitant]
     Dosage: 500 mg/m2, qd
     Route: 042
     Dates: start: 20120507, end: 20120507

REACTIONS (4)
  - Injection site vasculitis [Recovered/Resolved]
  - Injection site pain [Recovered/Resolved]
  - Injection site induration [Recovered/Resolved]
  - Injection site erythema [Recovered/Resolved]
